FAERS Safety Report 7221709-0 (Version None)
Quarter: 2011Q1

REPORT INFORMATION
  Report Type: 
  Country: None (occurrence: None)
  Receive Date: 20110112
  Receipt Date: 20110110
  Transmission Date: 20110831
  Serious: Yes (Other)
  Sender: FDA-Public Use
  Company Number: DE-PFIZER INC-2011005456

PATIENT
  Age: 72 Year
  Sex: Female

DRUGS (4)
  1. LEVOTHYROXINE SODIUM [Concomitant]
     Indication: THYROID DISORDER
     Route: 048
  2. LAFAMME ^JENAPHARM^ [Concomitant]
  3. CLINDAMYCIN HCL [Suspect]
     Indication: PERIODONTITIS
     Dosage: 1 DF, 4X/DAY
  4. LYRICA [Concomitant]
     Route: 048

REACTIONS (2)
  - DYSPEPSIA [None]
  - ABDOMINAL DISCOMFORT [None]
